FAERS Safety Report 15613392 (Version 1)
Quarter: 2018Q4

REPORT INFORMATION
  Report Type: Spontaneous
  Country: US (occurrence: US)
  Receive Date: 20181113
  Receipt Date: 20181113
  Transmission Date: 20190205
  Serious: No
  Sender: FDA-Public Use
  Company Number: US-ASTRAZENECA-2018SF45150

PATIENT
  Age: 12 Year
  Sex: Male
  Weight: 130 kg

DRUGS (7)
  1. ZOMIG [Suspect]
     Active Substance: ZOLMITRIPTAN
     Indication: MIGRAINE
     Dosage: 5 MG NASAL SPRAY 1 SPRAY EVERY 2 HOURS, NO MORE THAN 2 SPRAYS PER DAY, 3 DAYS PER WEEK
     Route: 045
     Dates: end: 20181101
  2. ZOMIG [Suspect]
     Active Substance: ZOLMITRIPTAN
     Indication: HEADACHE
     Dosage: 5 MG NASAL SPRAY 1 SPRAY EVERY 2 HOURS, NO MORE THAN 2 SPRAYS PER DAY, 3 DAYS PER WEEK
     Route: 045
     Dates: start: 201711
  3. PEPCID [Concomitant]
     Active Substance: FAMOTIDINE
     Route: 065
  4. ZOMIG [Suspect]
     Active Substance: ZOLMITRIPTAN
     Indication: HEADACHE
     Dosage: 5 MG NASAL SPRAY 1 SPRAY EVERY 2 HOURS, NO MORE THAN 2 SPRAYS PER DAY, 3 DAYS PER WEEK
     Route: 045
     Dates: end: 20181101
  5. ZYRTEC [Concomitant]
     Active Substance: CETIRIZINE HYDROCHLORIDE
     Route: 065
  6. PAXIL [Concomitant]
     Active Substance: PAROXETINE HYDROCHLORIDE
     Route: 065
  7. ZOMIG [Suspect]
     Active Substance: ZOLMITRIPTAN
     Indication: MIGRAINE
     Dosage: 5 MG NASAL SPRAY 1 SPRAY EVERY 2 HOURS, NO MORE THAN 2 SPRAYS PER DAY, 3 DAYS PER WEEK
     Route: 045
     Dates: start: 201711

REACTIONS (2)
  - Hypoaesthesia [Unknown]
  - Drug effect decreased [Not Recovered/Not Resolved]

NARRATIVE: CASE EVENT DATE: 20181020
